FAERS Safety Report 13070716 (Version 1)
Quarter: 2016Q4

REPORT INFORMATION
  Report Type: Spontaneous
  Country: US (occurrence: US)
  Receive Date: 20161229
  Receipt Date: 20161229
  Transmission Date: 20170207
  Serious: No
  Sender: FDA-Public Use
  Company Number: US-AUROBINDO-AUR-APU-2015-11565

PATIENT
  Sex: Female

DRUGS (1)
  1. AMOXICILLIN CAPSULES USP 500 MG [Suspect]
     Active Substance: AMOXICILLIN
     Indication: SINUSITIS
     Dosage: 500 MG, TWO TIMES A DAY ONE CAPSULE
     Route: 065
     Dates: start: 20151209, end: 20151210

REACTIONS (1)
  - Dyspepsia [Recovered/Resolved]

NARRATIVE: CASE EVENT DATE: 20151209
